FAERS Safety Report 20960671 (Version 3)
Quarter: 2022Q3

REPORT INFORMATION
  Report Type: Spontaneous
  Country: FR (occurrence: FR)
  Receive Date: 20220615
  Receipt Date: 20220902
  Transmission Date: 20221027
  Serious: Yes (Hospitalization, Other)
  Sender: FDA-Public Use
  Company Number: FR-009507513-1704FRA011061

PATIENT
  Sex: Female

DRUGS (3)
  1. FOSAVANCE [Suspect]
     Active Substance: ALENDRONATE SODIUM\CHOLECALCIFEROL
     Indication: Osteoporosis
     Dosage: 1 TABLET PER WEEK
     Route: 048
     Dates: start: 2000, end: 201204
  2. SOTALOL [Concomitant]
     Active Substance: SOTALOL
     Dosage: UNK
  3. GINKGO EXTRACT\HEPTAMINOL\TROXERUTIN [Concomitant]
     Active Substance: GINKGO\HEPTAMINOL\TROXERUTIN
     Dosage: UNK

REACTIONS (6)
  - Breast cancer [Recovered/Resolved]
  - Ear canal stenosis [Unknown]
  - Tooth disorder [Not Recovered/Not Resolved]
  - Osteonecrosis of jaw [Not Recovered/Not Resolved]
  - Tooth injury [Not Recovered/Not Resolved]
  - Pulpless tooth [Not Recovered/Not Resolved]

NARRATIVE: CASE EVENT DATE: 20000101
